FAERS Safety Report 8895305 (Version 6)
Quarter: 2013Q2

REPORT INFORMATION
  Report Type: Spontaneous
  Country: US (occurrence: US)
  Receive Date: 20121108
  Receipt Date: 20130517
  Transmission Date: 20140414
  Serious: Yes (Hospitalization, Disabling, Other)
  Sender: FDA-Public Use
  Company Number: US-009507513-1210USA012664

PATIENT
  Sex: Female
  Weight: 46.71 kg

DRUGS (6)
  1. FOSAMAX [Suspect]
     Indication: OSTEOPOROSIS
     Dosage: 70 MG, QW
     Route: 048
     Dates: start: 2005, end: 200901
  2. FOSAMAX [Suspect]
     Indication: OSTEOPOROSIS
     Dosage: 70 MG, QW
     Route: 048
     Dates: start: 200902, end: 200909
  3. ALENDRONATE SODIUM [Suspect]
     Dosage: 70 MG, UNK
     Route: 048
  4. RECLAST [Suspect]
     Indication: OSTEOPOROSIS
     Dosage: 5 MG/ 100ML
     Route: 041
     Dates: start: 20091002, end: 20101015
  5. RECLAST [Suspect]
     Indication: OSTEOPOROSIS
  6. VITAMINS (UNSPECIFIED) [Concomitant]
     Indication: OSTEOPOROSIS
     Dosage: UNK, QD
     Route: 048

REACTIONS (24)
  - Femur fracture [Not Recovered/Not Resolved]
  - Low turnover osteopathy [Not Recovered/Not Resolved]
  - Osteonecrosis [Unknown]
  - Hip arthroplasty [Unknown]
  - Osteonecrosis [Unknown]
  - Cholecystectomy [Unknown]
  - Anaemia [Unknown]
  - Cerebrovascular accident [Not Recovered/Not Resolved]
  - Surgery [Unknown]
  - Cerebral thrombosis [Unknown]
  - Hypertension [Not Recovered/Not Resolved]
  - Gastroduodenitis [Unknown]
  - Cholecystitis infective [Unknown]
  - Cerebrovascular accident [Unknown]
  - Intervertebral disc degeneration [Unknown]
  - Complex regional pain syndrome [Not Recovered/Not Resolved]
  - Hysterectomy [Unknown]
  - Cholelithiasis [Unknown]
  - Peptic ulcer [Unknown]
  - Chronic obstructive pulmonary disease [Unknown]
  - Migraine [Unknown]
  - Spinal compression fracture [Unknown]
  - Hypertension [Unknown]
  - Pain in extremity [Unknown]
